FAERS Safety Report 7825402-2 (Version None)
Quarter: 2011Q4

REPORT INFORMATION
  Report Type: 
  Country: None (occurrence: None)
  Receive Date: 20111019
  Receipt Date: 20111012
  Transmission Date: 20120403
  Serious: Yes (Hospitalization)
  Sender: FDA-Public Use
  Company Number: US-JNJFOC-20110807214

PATIENT
  Sex: Female

DRUGS (1)
  1. DOXORUBICIN HCL [Suspect]
     Indication: OVARIAN CANCER
     Route: 042
     Dates: start: 20110313

REACTIONS (10)
  - INCORRECT DOSE ADMINISTERED [None]
  - DIZZINESS [None]
  - RED BLOOD CELL COUNT DECREASED [None]
  - LUNG DISORDER [None]
  - FATIGUE [None]
  - RESPIRATORY TRACT IRRITATION [None]
  - FEELING ABNORMAL [None]
  - ASTHENIA [None]
  - PRODUCT QUALITY ISSUE [None]
  - DYSPNOEA [None]
